FAERS Safety Report 6034950-X (Version None)
Quarter: 2009Q1

REPORT INFORMATION
  Report Type: 
  Country: None (occurrence: None)
  Receive Date: 20090112
  Receipt Date: 20010402
  Transmission Date: 20090719
  Serious: No
  Sender: FDA-Public Use
  Company Number: US-ABBOTT-08P-163-0462222-00

PATIENT
  Sex: Male

DRUGS (2)
  1. HYTRIN [Suspect]
     Indication: BENIGN PROSTATIC HYPERPLASIA
     Route: 048
  2. HYTRIN [Suspect]
     Indication: HYPERTENSION

REACTIONS (1)
  - HEART RATE IRREGULAR [None]
